FAERS Safety Report 6278064-2 (Version None)
Quarter: 2009Q3

REPORT INFORMATION
  Report Type: 
  Country: None (occurrence: None)
  Receive Date: 20090722
  Receipt Date: 20090713
  Transmission Date: 20100115
  Serious: Yes (Hospitalization)
  Sender: FDA-Public Use
  Company Number: PHHO2009DE07046

PATIENT
  Sex: Male
  Weight: 70 kg

DRUGS (3)
  1. RAD 666 RAD+TAB [Suspect]
     Indication: LIVER TRANSPLANT
     Dosage: 2 MG/DAY
     Route: 048
     Dates: start: 20090526
  2. TACROLIMUS COMP-TAC+ [Suspect]
     Indication: LIVER TRANSPLANT
     Dosage: OPEN-LABEL
     Dates: start: 20090501
  3. URBASON [Suspect]
     Indication: LIVER TRANSPLANT
     Dosage: OPEN-LABEL
     Route: 042
     Dates: start: 20090501

REACTIONS (4)
  - ASCITES [None]
  - BACTERIAL INFECTION [None]
  - BLOOD ALKALINE PHOSPHATASE INCREASED [None]
  - GAMMA-GLUTAMYLTRANSFERASE INCREASED [None]
